FAERS Safety Report 11189688 (Version 3)
Quarter: 2015Q3

REPORT INFORMATION
  Report Type: Spontaneous
  Country: PH (occurrence: PH)
  Receive Date: 20150615
  Receipt Date: 20150703
  Transmission Date: 20151125
  Serious: Yes (Hospitalization, Other)
  Sender: FDA-Public Use
  Company Number: PH-009507513-1506PHL005788

PATIENT
  Age: 9 Year
  Sex: Female

DRUGS (4)
  1. ESMERON [Suspect]
     Active Substance: ROCURONIUM BROMIDE
     Indication: ANAESTHESIA
     Dosage: 96 MG, ONCE; TOTAL DAILY DOSE: 0.6MG/KG
  2. MIDAZOLAM [Concomitant]
     Active Substance: MIDAZOLAM\MIDAZOLAM HYDROCHLORIDE
  3. FENTANYL. [Concomitant]
     Active Substance: FENTANYL
  4. ATROPINE. [Concomitant]
     Active Substance: ATROPINE

REACTIONS (2)
  - Bradycardia [Recovered/Resolved]
  - Accidental overdose [Unknown]
